FAERS Safety Report 13211685 (Version 2)
Quarter: 2017Q1

REPORT INFORMATION
  Report Type: Spontaneous
  Country: GB (occurrence: GB)
  Receive Date: 20170210
  Receipt Date: 20170223
  Transmission Date: 20170428
  Serious: Yes (Death)
  Sender: FDA-Public Use
  Company Number: GB-TEVA-737515ACC

PATIENT
  Age: 57 Year
  Sex: Male

DRUGS (2)
  1. PROGRAF [Suspect]
     Active Substance: TACROLIMUS\TACROLIMUS ANHYDROUS
     Route: 065
  2. MYFENAX [Suspect]
     Active Substance: MYCOPHENOLATE MOFETIL
     Dosage: 2000 MILLIGRAM DAILY;
     Route: 065

REACTIONS (1)
  - Death [Fatal]

NARRATIVE: CASE EVENT DATE: 20170111
